FAERS Safety Report 7403529-7 (Version None)
Quarter: 2011Q1

REPORT INFORMATION
  Report Type: 
  Country: None (occurrence: None)
  Receive Date: 20110301
  Receipt Date: 20100121
  Transmission Date: 20110831
  Serious: Yes (Other)
  Sender: FDA-Public Use
  Company Number: US-JNJFOC-20100109545

PATIENT
  Age: 66 Year
  Sex: Female

DRUGS (1)
  1. MOTRIN [Suspect]
     Indication: ARTHRALGIA

REACTIONS (1)
  - GASTRIC ULCER [None]
